FAERS Safety Report 5372059-9 (Version None)
Quarter: 2007Q2

REPORT INFORMATION
  Report Type: 
  Country: None (occurrence: None)
  Receive Date: 20070627
  Receipt Date: 20070619
  Transmission Date: 20071010
  Serious: Yes (Hospitalization)
  Sender: FDA-Public Use
  Company Number: GB-ROCHE-503991

PATIENT
  Age: 35 Year
  Sex: Female
  Weight: 131 kg

DRUGS (5)
  1. XENICAL [Suspect]
     Indication: OBESITY
     Route: 048
     Dates: start: 20070216
  2. HYDRALAZINE HCL [Concomitant]
     Indication: HYPERTENSION
  3. DOXAZOSIN MESYLATE [Concomitant]
     Indication: HYPERTENSION
  4. ATENOLOL [Concomitant]
     Indication: HYPERTENSION
  5. AMLODIPINE [Concomitant]
     Indication: HYPERTENSION

REACTIONS (1)
  - HYPERTENSION [None]
